FAERS Safety Report 17374577 (Version 1)
Quarter: 2020Q1

REPORT INFORMATION
  Report Type: Spontaneous
  Country: US (occurrence: US)
  Receive Date: 20200121
  Receipt Date: 20200121
  Transmission Date: 20200409
  Serious: Yes (Hospitalization)
  Sender: FDA-Public Use
  Company Number: None

PATIENT
  Age: 49 Year
  Sex: Female
  Weight: 74.39 kg

DRUGS (1)
  1. TAMOXIFEN (TAMOXIFEN CITRATE 20MG TAB ) [Suspect]
     Active Substance: TAMOXIFEN
     Indication: PROPHYLAXIS
     Route: 048
     Dates: start: 20190911, end: 20200115

REACTIONS (3)
  - Liver function test increased [None]
  - Chromaturia [None]
  - Hepatic enzyme increased [None]

NARRATIVE: CASE EVENT DATE: 20200115
